FAERS Safety Report 9028820 (Version 1)
Quarter: 2013Q1

REPORT INFORMATION
  Report Type: Other
  Country: TW (occurrence: TW)
  Receive Date: 20130124
  Receipt Date: 20130124
  Transmission Date: 20140127
  Serious: Yes (Other)
  Sender: FDA-Public Use
  Company Number: TW-BRISTOL-MYERS SQUIBB COMPANY-17287665

PATIENT
  Age: 62 Year
  Sex: Female

DRUGS (2)
  1. ARIPIPRAZOLE [Suspect]
     Indication: MAJOR DEPRESSION
     Dosage: REDUCED TO 2.5MG,1.875 MG (EVERY OTHER DAY)
  2. FLUOXETINE [Interacting]
     Indication: MAJOR DEPRESSION

REACTIONS (2)
  - Hypomania [Unknown]
  - Drug interaction [Unknown]
